FAERS Safety Report 13611134 (Version 1)
Quarter: 2017Q2

REPORT INFORMATION
  Report Type: Spontaneous
  Country: US (occurrence: US)
  Receive Date: 20170603
  Receipt Date: 20170603
  Transmission Date: 20170830
  Serious: Yes (Other)
  Sender: FDA-Public Use
  Company Number: None

PATIENT
  Age: 72 Year
  Sex: Female
  Weight: 54 kg

DRUGS (7)
  1. MINOCYCLINE [Suspect]
     Active Substance: MINOCYCLINE\MINOCYCLINE HYDROCHLORIDE
     Indication: ANTIBIOTIC THERAPY
     Dosage: ?          QUANTITY:1 CAPSULE(S);?
     Route: 048
     Dates: start: 20161107, end: 20161108
  2. MINOCYCLINE [Suspect]
     Active Substance: MINOCYCLINE\MINOCYCLINE HYDROCHLORIDE
     Indication: POSTOPERATIVE CARE
     Dosage: ?          QUANTITY:1 CAPSULE(S);?
     Route: 048
     Dates: start: 20161107, end: 20161108
  3. TYLENOL [Concomitant]
     Active Substance: ACETAMINOPHEN
  4. MINOCYCLINE [Suspect]
     Active Substance: MINOCYCLINE\MINOCYCLINE HYDROCHLORIDE
     Indication: SKIN OPERATION
     Dosage: ?          QUANTITY:1 CAPSULE(S);?
     Route: 048
     Dates: start: 20161107, end: 20161108
  5. CALCIUM SUPPLEMENT [Concomitant]
     Active Substance: CALCIUM
  6. ATORVASTATIN [Concomitant]
     Active Substance: ATORVASTATIN
  7. METROPOLOL [Concomitant]
     Active Substance: METOPROLOL

REACTIONS (3)
  - Dizziness [None]
  - Nausea [None]
  - Ataxia [None]

NARRATIVE: CASE EVENT DATE: 20161108
